FAERS Safety Report 9866669 (Version 1)
Quarter: 2014Q1

REPORT INFORMATION
  Report Type: Spontaneous
  Country: US (occurrence: US)
  Receive Date: 20140204
  Receipt Date: 20140204
  Transmission Date: 20141002
  Serious: No
  Sender: FDA-Public Use
  Company Number: US-BIOGENIDEC-2014BI008179

PATIENT
  Sex: Female
  Weight: 77 kg

DRUGS (9)
  1. TECFIDERA [Suspect]
     Indication: PRODUCT USED FOR UNKNOWN INDICATION
     Route: 048
  2. VIIBRYD [Concomitant]
  3. XANAX [Concomitant]
  4. MOBIC [Concomitant]
  5. DETROL LA [Concomitant]
  6. NUVIGIL [Concomitant]
  7. SIMVASTATIN [Concomitant]
  8. CYMBALTA [Concomitant]
  9. LISINOPRIL [Concomitant]

REACTIONS (3)
  - Depression [Unknown]
  - Diarrhoea [Unknown]
  - Abdominal pain upper [Unknown]
